FAERS Safety Report 21531827 (Version 2)
Quarter: 2022Q4

REPORT INFORMATION
  Report Type: Report from Study
  Country: US (occurrence: US)
  Receive Date: 20221101
  Receipt Date: 20221119
  Transmission Date: 20230113
  Serious: Yes (Other)
  Sender: FDA-Public Use
  Company Number: US-ABBVIE-4180408

PATIENT
  Sex: Male

DRUGS (3)
  1. HUMIRA [Suspect]
     Active Substance: ADALIMUMAB
     Indication: Crohn^s disease
     Route: 058
  2. HUMIRA [Suspect]
     Active Substance: ADALIMUMAB
     Route: 058
  3. PFIZER-BIONTECH COVID-19 VACCINE [Concomitant]
     Active Substance: TOZINAMERAN
     Indication: COVID-19 immunisation
     Dosage: FREQUENCY 1 IN ONCE
     Route: 030

REACTIONS (6)
  - Back pain [Not Recovered/Not Resolved]
  - Bone neoplasm [Unknown]
  - Neoplasm [Recovering/Resolving]
  - Crohn^s disease [Not Recovered/Not Resolved]
  - Stress [Unknown]
  - Pain in extremity [Unknown]

NARRATIVE: CASE EVENT DATE: 20190101
